FAERS Safety Report 6386638-3 (Version None)
Quarter: 2009Q3

REPORT INFORMATION
  Report Type: 
  Country: None (occurrence: None)
  Receive Date: 20090930
  Receipt Date: 20090930
  Transmission Date: 20100115
  Serious: Yes (Hospitalization)
  Sender: FDA-Public Use
  Company Number: None

PATIENT
  Sex: Male
  Weight: 74 kg

DRUGS (1)
  1. LENALIDOMIDE [Suspect]
     Indication: HODGKIN'S DISEASE
     Dosage: 25 MG Q DAY PO
     Route: 048
     Dates: start: 20090917

REACTIONS (6)
  - CHEST X-RAY ABNORMAL [None]
  - CONDITION AGGRAVATED [None]
  - COUGH [None]
  - METASTASES TO LUNG [None]
  - OPPORTUNISTIC INFECTION [None]
  - PYREXIA [None]
